FAERS Safety Report 6012251-3 (Version None)
Quarter: 2008Q4

REPORT INFORMATION
  Report Type: 
  Country: None (occurrence: None)
  Receive Date: 20081218
  Receipt Date: 20081210
  Transmission Date: 20090506
  Serious: Yes (Hospitalization)
  Sender: FDA-Public Use
  Company Number: FR-ASTRAZENECA-2008CG01828

PATIENT
  Age: 972 Month
  Sex: Male

DRUGS (7)
  1. NEXIUM [Suspect]
     Indication: OESOPHAGITIS
     Route: 048
     Dates: start: 20070101
  2. ALLOPURINOL [Suspect]
     Indication: GOUT
     Route: 048
     Dates: start: 20070101, end: 20080601
  3. XATRAL LP [Concomitant]
     Indication: PROSTATIC ADENOMA
     Route: 048
     Dates: start: 20070101
  4. AVODART [Concomitant]
     Indication: PROSTATIC ADENOMA
     Route: 048
     Dates: start: 20070101
  5. ARANESP [Concomitant]
     Indication: ANAEMIA
     Dosage: 40 MG EVERY TEN DAYS
     Dates: start: 20070101
  6. QVAR 40 [Concomitant]
     Indication: RESPIRATORY FAILURE
     Route: 055
     Dates: start: 20070101
  7. SPIRIVA [Concomitant]
     Indication: RESPIRATORY FAILURE
     Route: 055
     Dates: start: 20070101

REACTIONS (1)
  - NEUROPATHY PERIPHERAL [None]
